FAERS Safety Report 25585710 (Version 2)
Quarter: 2025Q3

REPORT INFORMATION
  Report Type: Spontaneous
  Country: ID (occurrence: ID)
  Receive Date: 20250721
  Receipt Date: 20250731
  Transmission Date: 20251020
  Serious: Yes (Death)
  Sender: PFIZER
  Company Number: ID-PFIZER INC-PV202500086177

PATIENT

DRUGS (1)
  1. ALECTINIB [Suspect]
     Active Substance: ALECTINIB

REACTIONS (3)
  - Anaemia [Fatal]
  - Pleural effusion [Fatal]
  - Haemorrhage [Fatal]
